FAERS Safety Report 4338393-6 (Version None)
Quarter: 2004Q2

REPORT INFORMATION
  Report Type: 
  Country: None (occurrence: None)
  Receive Date: 20040409
  Receipt Date: 20040405
  Transmission Date: 20050107
  Serious: Yes (Hospitalization)
  Sender: FDA-Public Use
  Company Number: 2004SE01501

PATIENT
  Age: 45 Year
  Sex: Female

DRUGS (2)
  1. ZOLADEX [Suspect]
     Indication: MENORRHAGIA
     Dosage: 3.6 MG Q4WK SQ
     Dates: start: 20030120, end: 20030217
  2. ZOLADEX [Suspect]
     Indication: UTERINE POLYP
     Dosage: 3.6 MG Q4WK SQ
     Dates: start: 20030120, end: 20030217

REACTIONS (4)
  - CHOKING SENSATION [None]
  - HEADACHE [None]
  - HOT FLUSH [None]
  - SYNCOPE [None]
